FAERS Safety Report 4735869-4 (Version None)
Quarter: 2005Q3

REPORT INFORMATION
  Report Type: 
  Country: None (occurrence: None)
  Receive Date: 20050805
  Receipt Date: 20050722
  Transmission Date: 20060218
  Serious: Yes (Disabling)
  Sender: FDA-Public Use
  Company Number: GB-JNJFOC-20050603761

PATIENT
  Sex: Male

DRUGS (17)
  1. LYRINEL XL [Suspect]
     Indication: NOCTURIA
     Route: 048
     Dates: start: 20050420, end: 20050501
  2. CO-BENELDOPA [Concomitant]
  3. CO-BENELDOPA [Concomitant]
     Dosage: ONE CAPSULE TO BE TAKEN AT NIGHT.
  4. MACROGOL [Concomitant]
     Route: 048
  5. TEMAZEPAM [Concomitant]
  6. ACETAMINOPHEN W/ CODEINE [Concomitant]
  7. ACETAMINOPHEN W/ CODEINE [Concomitant]
  8. BICALUTAMIDE [Concomitant]
  9. RANITIDINE [Concomitant]
  10. GOSERELIN [Concomitant]
  11. BETAMETHASONE VALERATE [Concomitant]
  12. DIGOXIN [Concomitant]
  13. FUROSEMIDE [Concomitant]
  14. ROPINIROLE HCL [Concomitant]
  15. PRAVASTATIN [Concomitant]
  16. ASPIRIN [Concomitant]
  17. DIAZEPAM [Concomitant]
     Route: 048

REACTIONS (1)
  - OEDEMA GENITAL [None]
